FAERS Safety Report 6534272-4 (Version None)
Quarter: 2009Q4

REPORT INFORMATION
  Report Type: 
  Country: None (occurrence: None)
  Receive Date: 20091214
  Receipt Date: 20081105
  Transmission Date: 20100525
  Serious: Yes (Other)
  Sender: FDA-Public Use
  Company Number: 555684

PATIENT
  Age: 50 Year
  Sex: Female

DRUGS (4)
  1. PEGASYS [Suspect]
     Indication: HEPATITIS C
     Dosage: 180 UG 1 PER WEEK
     Dates: start: 20080307, end: 20090714
  2. RIBAVIRIN [Suspect]
     Indication: HEPATITIS C
     Dosage: 1000 MG DAILY
     Dates: start: 20090307, end: 20090714
  3. IBUPROFEN [Suspect]
     Indication: HEPATIC PAIN
  4. CONCERTA [Concomitant]

REACTIONS (29)
  - ABDOMINAL PAIN UPPER [None]
  - ANXIETY [None]
  - BONE PAIN [None]
  - CHEST PAIN [None]
  - CONSTIPATION [None]
  - DECREASED APPETITE [None]
  - DEPRESSION [None]
  - DRY SKIN [None]
  - FATIGUE [None]
  - FOOD CRAVING [None]
  - HAEMORRHAGIC DIATHESIS [None]
  - HEADACHE [None]
  - HEPATIC PAIN [None]
  - INCREASED TENDENCY TO BRUISE [None]
  - INFLUENZA LIKE ILLNESS [None]
  - INSOMNIA [None]
  - IRRITABILITY [None]
  - LOWER EXTREMITY MASS [None]
  - MASS [None]
  - MEMORY IMPAIRMENT [None]
  - NAUSEA [None]
  - PARAESTHESIA [None]
  - PYREXIA [None]
  - SKIN FISSURES [None]
  - TOOTH DISORDER [None]
  - VISUAL IMPAIRMENT [None]
  - VOMITING [None]
  - WEIGHT DECREASED [None]
  - WHITE BLOOD CELL COUNT DECREASED [None]
